FAERS Safety Report 7202960-2 (Version None)
Quarter: 2010Q4

REPORT INFORMATION
  Report Type: 
  Country: None (occurrence: None)
  Receive Date: 20101229
  Receipt Date: 20101216
  Transmission Date: 20110411
  Serious: Yes (Hospitalization, Other)
  Sender: FDA-Public Use
  Company Number: US-ELI_LILLY_AND_COMPANY-US201009000298

PATIENT
  Sex: Female

DRUGS (2)
  1. ALIMTA [Suspect]
     Indication: NON-SMALL CELL LUNG CANCER
  2. CISPLATIN [Concomitant]
     Indication: LUNG NEOPLASM MALIGNANT

REACTIONS (14)
  - BLOOD GLUCOSE INCREASED [None]
  - BUTTERFLY RASH [None]
  - CONNECTIVE TISSUE DISORDER [None]
  - CYSTITIS [None]
  - DEEP VEIN THROMBOSIS [None]
  - HAEMATURIA [None]
  - HERPES ZOSTER [None]
  - HYPOXIA [None]
  - INFECTION [None]
  - LUNG INFILTRATION [None]
  - NORMOCHROMIC NORMOCYTIC ANAEMIA [None]
  - PNEUMONITIS [None]
  - PULMONARY HAEMORRHAGE [None]
  - SKIN ULCER [None]
